FAERS Safety Report 21567668 (Version 1)
Quarter: 2022Q4

REPORT INFORMATION
  Report Type: Report from Study
  Country: US (occurrence: US)
  Receive Date: 20221108
  Receipt Date: 20221108
  Transmission Date: 20230113
  Serious: No
  Sender: FDA-Public Use
  Company Number: US-ABBVIE-4156967

PATIENT
  Age: 70 Year
  Sex: Female

DRUGS (1)
  1. RINVOQ [Suspect]
     Active Substance: UPADACITINIB
     Indication: Rheumatoid arthritis
     Dosage: FORM STRENGTH: 15 MG; THE EVENT OF SWOLLEN TONSIL AND SORE THROAT STARTED IN SEP 2022
     Route: 048
     Dates: start: 20220906

REACTIONS (3)
  - Oropharyngeal pain [Unknown]
  - Tonsillar hypertrophy [Unknown]
  - Rheumatoid arthritis [Unknown]

NARRATIVE: CASE EVENT DATE: 20221001
